FAERS Safety Report 8898657 (Version 2)
Quarter: 2012Q4

REPORT INFORMATION
  Report Type: 
  Country: US (occurrence: US)
  Receive Date: 20121109
  Receipt Date: 20121126
  Transmission Date: 20130627
  Serious: Yes (Hospitalization, Other)
  Sender: FDA-Public Use
  Company Number: US-BAYER-2012-115300

PATIENT
  Age: 18 Year
  Sex: Female

DRUGS (11)
  1. YAZ [Suspect]
     Dosage: UNK
     Dates: start: 20090801, end: 20100914
  2. AZITHROMYCIN [Concomitant]
     Dosage: 250 mg, UNK
  3. PROAIR HFA [Concomitant]
     Dosage: 90 mcg
     Route: 045
  4. IBUPROFEN [Concomitant]
     Dosage: 800 mg, UNK
  5. ACETAMINOPHEN [Concomitant]
  6. ALBUTEROL SULFATE [Concomitant]
  7. ATROVENT [Concomitant]
  8. HABITROL [Concomitant]
  9. NIASPAN [Concomitant]
  10. PROMETHAZINE HYDROCHLORIDE [Concomitant]
  11. AUGMENTIN [Concomitant]

REACTIONS (2)
  - Thrombosis [None]
  - Deep vein thrombosis [None]
